FAERS Safety Report 6525492-3 (Version None)
Quarter: 2010Q1

REPORT INFORMATION
  Report Type: 
  Country: None (occurrence: None)
  Receive Date: 20100104
  Receipt Date: 20091223
  Transmission Date: 20100710
  Serious: Yes (Hospitalization)
  Sender: FDA-Public Use
  Company Number: GB-PFIZER INC-2009313748

PATIENT

DRUGS (1)
  1. CHAMPIX [Suspect]
     Dosage: 1 MG, 1X/DAY

REACTIONS (2)
  - ORTHOPEDIC PROCEDURE [None]
  - WITHDRAWAL SYNDROME [None]
